FAERS Safety Report 11156673 (Version 1)
Quarter: 2015Q2

REPORT INFORMATION
  Report Type: Spontaneous
  Country: IT (occurrence: IT)
  Receive Date: 20150602
  Receipt Date: 20150602
  Transmission Date: 20150821
  Serious: Yes (Other)
  Sender: FDA-Public Use
  Company Number: IT-ASTRAZENECA-2015SE51189

PATIENT
  Age: 17590 Day
  Sex: Female

DRUGS (7)
  1. LOBIVON [Concomitant]
     Active Substance: NEBIVOLOL HYDROCHLORIDE
     Route: 048
  2. FROBEN GOLA [Concomitant]
     Dosage: MOUTHWASH
     Route: 048
  3. MOUTH WASH [Concomitant]
  4. FASLODEX [Suspect]
     Active Substance: FULVESTRANT
     Indication: BREAST CANCER METASTATIC
     Dosage: 250MG/5ML SOLUTION FOR INJECTION
     Route: 030
     Dates: start: 20150518
  5. GASTRO-PROTECTANT [Concomitant]
  6. ANTI-HYPERTENSIVE THERAPY [Concomitant]
  7. LANSOPRAZOLE. [Concomitant]
     Active Substance: LANSOPRAZOLE
     Route: 048

REACTIONS (4)
  - Lip oedema [Recovered/Resolved]
  - Pruritus [Recovered/Resolved]
  - Orbital oedema [Recovered/Resolved]
  - Hypersensitivity [Recovered/Resolved]

NARRATIVE: CASE EVENT DATE: 20150519
